FAERS Safety Report 9728766 (Version 1)
Quarter: 2013Q4

REPORT INFORMATION
  Report Type: Report from Study
  Country: AR (occurrence: AR)
  Receive Date: 20131204
  Receipt Date: 20131204
  Transmission Date: 20140711
  Serious: Yes (Other)
  Sender: FDA-Public Use
  Company Number: AR-US-EMD SERONO, INC.-7253442

PATIENT
  Age: 28 Year
  Sex: Female

DRUGS (3)
  1. REBIF [Suspect]
     Indication: MULTIPLE SCLEROSIS
     Dates: start: 20120330, end: 20131004
  2. REBIF [Suspect]
     Dates: start: 20111227, end: 20120330
  3. REBIF [Suspect]
     Dates: start: 20131125

REACTIONS (4)
  - Abortion [Recovered/Resolved]
  - Chills [Unknown]
  - Inappropriate schedule of drug administration [Recovered/Resolved]
  - Maternal exposure timing unspecified [Recovered/Resolved]
